FAERS Safety Report 22342391 (Version 1)
Quarter: 2023Q2

REPORT INFORMATION
  Report Type: Report from Study
  Country: IL (occurrence: IL)
  Receive Date: 20230519
  Receipt Date: 20230519
  Transmission Date: 20230721
  Serious: Yes (Hospitalization)
  Sender: FDA-Public Use
  Company Number: IL-ABBVIE-4769365

PATIENT
  Age: 51 Year
  Sex: Male
  Weight: 86 kg

DRUGS (14)
  1. RISANKIZUMAB [Suspect]
     Active Substance: RISANKIZUMAB
     Indication: Psoriasis
     Dosage: 1  INJECTIONS
     Dates: start: 20230303, end: 20230303
  2. RISANKIZUMAB [Suspect]
     Active Substance: RISANKIZUMAB
     Dosage: 1  INJECTIONS
     Dates: start: 20221125, end: 20221125
  3. RISANKIZUMAB [Suspect]
     Active Substance: RISANKIZUMAB
     Dosage: 2 INJECTIONS
     Dates: start: 20220218, end: 20220218
  4. RISANKIZUMAB [Suspect]
     Active Substance: RISANKIZUMAB
     Dosage: 2 INJECTIONS
     Dates: start: 20220502, end: 20220502
  5. RISANKIZUMAB [Suspect]
     Active Substance: RISANKIZUMAB
     Dosage: 2 INJECTIONS
     Dates: start: 20211119, end: 20211119
  6. RISANKIZUMAB [Suspect]
     Active Substance: RISANKIZUMAB
     Dosage: 2 INJECTIONS
     Dates: start: 20220826, end: 20220826
  7. RISANKIZUMAB [Suspect]
     Active Substance: RISANKIZUMAB
     Dosage: 2 INJECTIONS
     Dates: start: 20210721, end: 20210721
  8. RISANKIZUMAB [Suspect]
     Active Substance: RISANKIZUMAB
     Dosage: 2 INJECTIONS
     Dates: start: 20210820, end: 20210820
  9. cartia [Concomitant]
     Indication: Myocardial ischaemia
     Route: 048
     Dates: start: 201809
  10. BISOPROLOL FUMARATE [Concomitant]
     Active Substance: BISOPROLOL FUMARATE
     Indication: Myocardial ischaemia
     Route: 048
     Dates: start: 201809
  11. ATORVASTATIN CALCIUM\EZETIMIBE [Concomitant]
     Active Substance: ATORVASTATIN CALCIUM\EZETIMIBE
     Indication: Hypercholesterolaemia
     Dosage: 10/80 MG
     Route: 048
     Dates: start: 201809, end: 202210
  12. PLAVIX [Concomitant]
     Active Substance: CLOPIDOGREL BISULFATE
     Indication: Myocardial ischaemia
     Route: 048
     Dates: start: 201809, end: 202207
  13. OMEPRAZOLE [Concomitant]
     Active Substance: OMEPRAZOLE
     Indication: Gastrooesophageal reflux disease
     Route: 048
     Dates: start: 201809
  14. RAMIPRIL [Concomitant]
     Active Substance: RAMIPRIL
     Indication: Myocardial ischaemia
     Route: 048
     Dates: start: 201809

REACTIONS (2)
  - Proctalgia [Recovered/Resolved]
  - Haemorrhoid operation [Recovered/Resolved]

NARRATIVE: CASE EVENT DATE: 20221204
